FAERS Safety Report 5706080-5 (Version None)
Quarter: 2008Q2

REPORT INFORMATION
  Report Type: 
  Country: None (occurrence: None)
  Receive Date: 20080415
  Receipt Date: 20080404
  Transmission Date: 20081010
  Serious: Yes (Other)
  Sender: FDA-Public Use
  Company Number: CA-ROCHE-557524

PATIENT
  Sex: Male

DRUGS (7)
  1. TAMIFLU [Suspect]
     Route: 048
     Dates: start: 20080328, end: 20080401
  2. OLANZAPINE [Concomitant]
     Dosage: 20 MG AT BED TIME AND 7.5 MG IN THE MORNING
     Route: 048
  3. TEGRETOL [Concomitant]
     Route: 048
  4. TOPAMAX [Concomitant]
     Route: 048
  5. CLONAZEPAM [Concomitant]
     Route: 048
  6. ENALAPRIL MALEATE [Concomitant]
     Indication: HYPERTENSION
     Route: 048
  7. RAMIPRIL [Concomitant]
     Indication: HYPERTENSION
     Route: 048

REACTIONS (9)
  - ABNORMAL BEHAVIOUR [None]
  - CONVULSION [None]
  - DIARRHOEA [None]
  - FALL [None]
  - FATIGUE [None]
  - GAIT DISTURBANCE [None]
  - HEADACHE [None]
  - URINARY INCONTINENCE [None]
  - VOMITING [None]
